FAERS Safety Report 4450383-1 (Version None)
Quarter: 2004Q3

REPORT INFORMATION
  Report Type: 
  Country: None (occurrence: None)
  Receive Date: 20040914
  Receipt Date: 20040902
  Transmission Date: 20050211
  Serious: Yes (Hospitalization)
  Sender: FDA-Public Use
  Company Number: DEWYE014403SEP04

PATIENT
  Sex: Male

DRUGS (3)
  1. RAPAMUNE [Suspect]
     Indication: PROPHYLAXIS AGAINST TRANSPLANT REJECTION
     Dosage: 4 MG
     Dates: start: 20011101
  2. PREDNISONE TAB [Concomitant]
  3. RYTMONORM (PROPAFENONE HYDROCHLORIDE) [Concomitant]

REACTIONS (3)
  - ARRHYTHMIA [None]
  - INFECTION [None]
  - NASOPHARYNGITIS [None]
